FAERS Safety Report 6408146-3 (Version None)
Quarter: 2009Q4

REPORT INFORMATION
  Report Type: 
  Country: None (occurrence: None)
  Receive Date: 20091019
  Receipt Date: 20091009
  Transmission Date: 20100525
  Serious: Yes (Other)
  Sender: FDA-Public Use
  Company Number: 2009ST000174

PATIENT
  Sex: Female

DRUGS (1)
  1. ZEGERID [Suspect]
     Indication: GASTROOESOPHAGEAL REFLUX DISEASE
     Dosage: 40 MG; QD; PO
     Route: 048
     Dates: start: 20071001

REACTIONS (1)
  - BREAST CANCER IN SITU [None]
